FAERS Safety Report 10355080 (Version 3)
Quarter: 2014Q3

REPORT INFORMATION
  Report Type: Spontaneous
  Country: US (occurrence: US)
  Receive Date: 20140731
  Receipt Date: 20140910
  Transmission Date: 20150326
  Serious: Yes (Hospitalization)
  Sender: FDA-Public Use
  Company Number: US-BRISTOL-MYERS SQUIBB COMPANY-21229398

PATIENT
  Age: 67 Year
  Sex: Male
  Weight: 74.83 kg

DRUGS (1)
  1. SPRYCEL [Suspect]
     Active Substance: DASATINIB
     Indication: CHRONIC MYELOID LEUKAEMIA
     Dosage: RESUME ON 28/JUL/2014?TABS?UNK-UNK:100MG?UNK-ONG:70MG
     Route: 048

REACTIONS (3)
  - Neutropenia [Unknown]
  - Cardiac disorder [Unknown]
  - Weight increased [Unknown]

NARRATIVE: CASE EVENT DATE: 201407
